FAERS Safety Report 7022122-1 (Version None)
Quarter: 2010Q3

REPORT INFORMATION
  Report Type: 
  Country: None (occurrence: None)
  Receive Date: 20100930
  Receipt Date: 20100921
  Transmission Date: 20110219
  Serious: Yes (Other)
  Sender: FDA-Public Use
  Company Number: GB-ASTRAZENECA-2010SE44370

PATIENT
  Age: 29 Year
  Sex: Male

DRUGS (7)
  1. QUETIAPINE [Suspect]
     Indication: BIPOLAR I DISORDER
  2. HEROIN [Suspect]
  3. LSD [Suspect]
  4. METHADONE [Suspect]
  5. OLANZAPINE [Suspect]
     Indication: BIPOLAR I DISORDER
  6. VALPROATE ION [Suspect]
     Indication: EPILEPSY
     Dates: start: 20090101
  7. VENLAFAXINE [Suspect]
     Indication: BIPOLAR I DISORDER

REACTIONS (1)
  - OSTEOPOROSIS [None]
